FAERS Safety Report 5264456-7 (Version None)
Quarter: 2007Q1

REPORT INFORMATION
  Report Type: 
  Country: None (occurrence: None)
  Receive Date: 20070309
  Receipt Date: 20070226
  Transmission Date: 20070707
  Serious: Yes (Hospitalization)
  Sender: FDA-Public Use
  Company Number: 2007BI004426

PATIENT
  Age: 53 Year
  Sex: Female

DRUGS (1)
  1. AVONEX [Suspect]
     Indication: MULTIPLE SCLEROSIS
     Dosage: IM
     Route: 030
     Dates: start: 20040322

REACTIONS (5)
  - BLOOD DISORDER [None]
  - ESCHERICHIA INFECTION [None]
  - MEDICAL DEVICE IMPLANTATION [None]
  - PNEUMONIA [None]
  - POISONING [None]
